FAERS Safety Report 6929872-3 (Version None)
Quarter: 2010Q3

REPORT INFORMATION
  Report Type: 
  Country: None (occurrence: None)
  Receive Date: 20100813
  Receipt Date: 20100729
  Transmission Date: 20110219
  Serious: Yes (Death)
  Sender: FDA-Public Use
  Company Number: 2010AP001586

PATIENT
  Age: 49 Year
  Sex: Male

DRUGS (5)
  1. SERTRALINE HYDROCHLORIDE [Suspect]
     Indication: DEPRESSION
     Dosage: 100 MG; PO
     Route: 048
     Dates: start: 20091022, end: 20100708
  2. IPRATROPIUM BROMIDE [Concomitant]
  3. DESLORATADINE (DESLORATADINE) [Concomitant]
  4. BECLOMETHASONE DIPROPIONATE [Concomitant]
  5. SALMETEROL XINAFOATE (SALMETEROL XINAFOATE) [Concomitant]

REACTIONS (1)
  - SUBARACHNOID HAEMORRHAGE [None]
